FAERS Safety Report 18089028 (Version 1)
Quarter: 2020Q3

REPORT INFORMATION
  Report Type: Spontaneous
  Country: US (occurrence: US)
  Receive Date: 20200730
  Receipt Date: 20200730
  Transmission Date: 20201103
  Serious: No
  Sender: FDA-Public Use
  Company Number: US-JNJFOC-20200738994

PATIENT

DRUGS (1)
  1. ZYRTEC [Suspect]
     Active Substance: CETIRIZINE HYDROCHLORIDE
     Indication: PRODUCT USED FOR UNKNOWN INDICATION
     Route: 065

REACTIONS (7)
  - Heart rate increased [Unknown]
  - Pruritus [Unknown]
  - Oropharyngeal pain [Unknown]
  - Anxiety [Unknown]
  - Chest pain [Unknown]
  - Dyspepsia [Unknown]
  - Dyspnoea [Unknown]
